FAERS Safety Report 6375830-X (Version None)
Quarter: 2009Q3

REPORT INFORMATION
  Report Type: 
  Country: None (occurrence: None)
  Receive Date: 20090924
  Receipt Date: 20090914
  Transmission Date: 20100115
  Serious: Yes (Other)
  Sender: FDA-Public Use
  Company Number: IE-ELI_LILLY_AND_COMPANY-IE200906003902

PATIENT
  Sex: Male
  Weight: 83.9 kg

DRUGS (3)
  1. PROZAC [Suspect]
     Indication: DEPRESSION
     Dosage: 20 MG, UNK
     Route: 048
     Dates: start: 20090501, end: 20090520
  2. ACETAMINOPHEN W/ CODEINE [Concomitant]
     Indication: HEADACHE
     Route: 048
     Dates: start: 20080101
  3. ZOTON [Concomitant]
     Indication: DYSPEPSIA
     Dosage: 40 MG, UNK
     Route: 048

REACTIONS (3)
  - DEPRESSION [None]
  - HOMICIDAL IDEATION [None]
  - SUICIDAL IDEATION [None]
